FAERS Safety Report 6579474-6 (Version None)
Quarter: 2010Q1

REPORT INFORMATION
  Report Type: 
  Country: None (occurrence: None)
  Receive Date: 20100209
  Receipt Date: 20100209
  Transmission Date: 20100710
  Serious: No
  Sender: FDA-Public Use
  Company Number: None

PATIENT
  Age: 33 Year
  Sex: Female
  Weight: 55.7924 kg

DRUGS (1)
  1. SOLYDYNE ER 90MG NDC:99207-0461-30 [Suspect]
     Indication: ACNE CYSTIC
     Dosage: 1 PILL 1 XDAY X 30 DAYS PO
     Route: 048
     Dates: start: 20090824, end: 20090924

REACTIONS (10)
  - ALOPECIA [None]
  - DEPRESSION [None]
  - DIARRHOEA [None]
  - DIZZINESS [None]
  - HEADACHE [None]
  - MUSCLE DISORDER [None]
  - NAUSEA [None]
  - PRURITUS [None]
  - URTICARIA [None]
  - WEIGHT DECREASED [None]
